FAERS Safety Report 6667898-8 (Version None)
Quarter: 2010Q2

REPORT INFORMATION
  Report Type: 
  Country: None (occurrence: None)
  Receive Date: 20100401
  Receipt Date: 20100316
  Transmission Date: 20101027
  Serious: Yes (Other)
  Sender: FDA-Public Use
  Company Number: JP-SOLVAY-00310001670

PATIENT
  Age: 26 Year
  Sex: Male

DRUGS (4)
  1. FLUVOXAMINE MALEATE [Suspect]
     Indication: SOCIAL PHOBIA
     Dosage: 50 MILLIGRAM(S) ORAL; SEE IMAGE
     Route: 048
  2. SILECE (FLUNITRAZEPAM) [Concomitant]
  3. MEILAX (ETHYL LOFLAZEPATE) [Suspect]
  4. ZOLPIDEM TARTRATE [Concomitant]

REACTIONS (1)
  - LOSS OF CONSCIOUSNESS [None]
